FAERS Safety Report 5738023-2 (Version None)
Quarter: 2008Q2

REPORT INFORMATION
  Report Type: 
  Country: None (occurrence: None)
  Receive Date: 20080514
  Receipt Date: 20080512
  Transmission Date: 20081010
  Serious: Yes (Other)
  Sender: FDA-Public Use
  Company Number: GB-BAYER-200811234BNE

PATIENT
  Age: 79 Year
  Sex: Male
  Weight: 65 kg

DRUGS (10)
  1. ASPIRIN [Suspect]
     Indication: PROPHYLAXIS
     Route: 065
     Dates: start: 19950306
  2. ATORVASTATIN [Suspect]
     Indication: BLOOD CHOLESTEROL INCREASED
     Route: 065
     Dates: start: 20070221
  3. EPOETIN BETA (RCH) [Suspect]
     Indication: ANAEMIA
     Route: 065
     Dates: start: 20060114
  4. HYDROXOCOBALAMIN [Suspect]
     Indication: DRUG USE FOR UNKNOWN INDICATION
     Route: 065
     Dates: start: 20070221
  5. FERROUS SULFATE TAB [Suspect]
     Indication: ANAEMIA
     Route: 065
     Dates: start: 20040224
  6. LANSOPRAZOLE [Suspect]
     Indication: PROPHYLAXIS AGAINST GASTROINTESTINAL ULCER
     Route: 065
     Dates: start: 20061228
  7. ACETAMINOPHEN [Suspect]
     Indication: DRUG USE FOR UNKNOWN INDICATION
     Route: 065
     Dates: start: 20010501
  8. TAMSULOSIN HCL [Suspect]
     Indication: DRUG USE FOR UNKNOWN INDICATION
     Route: 065
     Dates: start: 20061120
  9. VALSARTAN [Suspect]
     Indication: HYPERTENSION
     Route: 065
     Dates: start: 20060403
  10. VENTOLIN [Suspect]
     Indication: ASTHMA
     Route: 065
     Dates: start: 20031117

REACTIONS (1)
  - IDIOPATHIC PULMONARY FIBROSIS [None]
